FAERS Safety Report 6310749-1 (Version None)
Quarter: 2009Q3

REPORT INFORMATION
  Report Type: 
  Country: None (occurrence: None)
  Receive Date: 20090812
  Receipt Date: 20090320
  Transmission Date: 20100115
  Serious: Yes (Other)
  Sender: FDA-Public Use
  Company Number: 623659

PATIENT
  Age: 58 Year
  Sex: Male

DRUGS (1)
  1. CELLCEPT [Suspect]
     Indication: PROPHYLAXIS AGAINST TRANSPLANT REJECTION
     Dosage: 1000 MG 2 PER DAY

REACTIONS (2)
  - LIPOMA [None]
  - PROGRESSIVE MULTIFOCAL LEUKOENCEPHALOPATHY [None]
